FAERS Safety Report 20787776 (Version 4)
Quarter: 2022Q2

REPORT INFORMATION
  Report Type: Report from Study
  Country: US (occurrence: US)
  Receive Date: 20220505
  Receipt Date: 20220624
  Transmission Date: 20220720
  Serious: Yes (Other)
  Sender: FDA-Public Use
  Company Number: US-UNITED THERAPEUTICS-UNT-2022-009109

PATIENT
  Sex: Female
  Weight: 85.261 kg

DRUGS (7)
  1. TREPROSTINIL SODIUM [Suspect]
     Active Substance: TREPROSTINIL SODIUM
     Indication: Pulmonary arterial hypertension
     Dosage: UNK
     Dates: start: 20220411
  2. TREPROSTINIL SODIUM [Suspect]
     Active Substance: TREPROSTINIL SODIUM
     Dosage: 18-72 ?G, QID
     Dates: start: 202204
  3. TREPROSTINIL SODIUM [Suspect]
     Active Substance: TREPROSTINIL SODIUM
     Dosage: UNK, TID
     Dates: start: 202204
  4. TREPROSTINIL SODIUM [Suspect]
     Active Substance: TREPROSTINIL SODIUM
     Dosage: 12 ?G, BID
     Dates: start: 2022, end: 2022
  5. TADALAFIL [Suspect]
     Active Substance: TADALAFIL
     Indication: Product used for unknown indication
     Dosage: UNK
     Route: 065
  6. SILDENAFIL CITRATE [Suspect]
     Active Substance: SILDENAFIL CITRATE
     Indication: Product used for unknown indication
     Dosage: UNK
     Route: 065
  7. OPSUMIT [Concomitant]
     Active Substance: MACITENTAN
     Indication: Product used for unknown indication
     Dosage: UNK
     Route: 065

REACTIONS (20)
  - Loss of consciousness [Unknown]
  - Ascites [Unknown]
  - Dyspnoea at rest [Unknown]
  - Hypotension [Not Recovered/Not Resolved]
  - Syncope [Unknown]
  - Sinus disorder [Unknown]
  - Pruritus [Unknown]
  - Throat tightness [Unknown]
  - Seasonal allergy [Unknown]
  - Exercise tolerance decreased [Unknown]
  - Dyspnoea exertional [Unknown]
  - Oedema [Unknown]
  - Fatigue [Unknown]
  - Dizziness [Unknown]
  - Headache [Recovered/Resolved]
  - Throat irritation [Unknown]
  - Cough [Unknown]
  - Limb injury [Unknown]
  - Amnesia [Unknown]
  - Initial insomnia [Unknown]

NARRATIVE: CASE EVENT DATE: 20220101
